FAERS Safety Report 5069230-2 (Version None)
Quarter: 2006Q3

REPORT INFORMATION
  Report Type: 
  Country: None (occurrence: None)
  Receive Date: 20060803
  Receipt Date: 20060302
  Transmission Date: 20061208
  Serious: Yes (Hospitalization, Other)
  Sender: FDA-Public Use
  Company Number: PHNU2006DE01207

PATIENT
  Sex: Male
  Weight: 85 kg

DRUGS (6)
  1. DIOVAN HCT [Suspect]
     Indication: HYPERTENSION
     Dosage: 1 DF, QD
     Route: 048
     Dates: start: 20030101, end: 20060101
  2. METOPROLOL ^STADA^ [Suspect]
     Dosage: 150 (100-0-50)
     Dates: start: 20020101
  3. DIGOTAB [Suspect]
     Dosage: UNK, UNK
     Dates: start: 20020101
  4. MARCUMAR [Suspect]
     Dates: start: 20020101
  5. SIMVASTATIN [Suspect]
  6. FLOTRIN [Suspect]

REACTIONS (3)
  - ATRIAL FIBRILLATION [None]
  - PERIPHERAL COLDNESS [None]
  - POLYNEUROPATHY [None]
